FAERS Safety Report 18789467 (Version 1)
Quarter: 2021Q1

REPORT INFORMATION
  Report Type: Spontaneous
  Country: IN (occurrence: IN)
  Receive Date: 20210126
  Receipt Date: 20210126
  Transmission Date: 20210419
  Serious: Yes (Hospitalization, Other)
  Sender: FDA-Public Use
  Company Number: IN-BAYER-2021-026197

PATIENT
  Age: 23 Year
  Sex: Male

DRUGS (3)
  1. REGORAFENIB. [Suspect]
     Active Substance: REGORAFENIB
     Indication: OSTEOSARCOMA METASTATIC
     Dosage: 80 MG DAILY
  2. REGORAFENIB. [Suspect]
     Active Substance: REGORAFENIB
     Indication: OSTEOSARCOMA METASTATIC
     Dosage: 120 MG DAILY
  3. REGORAFENIB. [Suspect]
     Active Substance: REGORAFENIB
     Indication: OSTEOSARCOMA METASTATIC
     Dosage: 160 MG DAILY

REACTIONS (6)
  - Off label use [None]
  - Abdominal pain upper [None]
  - Product use in unapproved indication [None]
  - Osteosarcoma metastatic [None]
  - Pancreatitis acute [Recovering/Resolving]
  - Metastases to lung [None]
